FAERS Safety Report 5044932-2 (Version None)
Quarter: 2006Q2

REPORT INFORMATION
  Report Type: 
  Country: None (occurrence: None)
  Receive Date: 20060601
  Receipt Date: 20060321
  Transmission Date: 20061013
  Serious: No
  Sender: FDA-Public Use
  Company Number: US200603005542

PATIENT
  Age: 54 Year
  Sex: Female

DRUGS (4)
  1. CYMBALTA [Suspect]
     Indication: DEPRESSION
     Dosage: 30 MG
     Dates: start: 20051101, end: 20060301
  2. SYNTHROID [Concomitant]
  3. ANTIHYPERTENSIVES [Concomitant]
  4. WELLBUTRIN [Concomitant]

REACTIONS (5)
  - CLUSTER HEADACHE [None]
  - DIZZINESS [None]
  - NAUSEA [None]
  - PHOTOPSIA [None]
  - PUPILLARY LIGHT REFLEX TESTS ABNORMAL [None]
